FAERS Safety Report 4752276-9 (Version None)
Quarter: 2005Q3

REPORT INFORMATION
  Report Type: 
  Country: None (occurrence: None)
  Receive Date: 20050825
  Receipt Date: 20050815
  Transmission Date: 20060218
  Serious: Yes (Hospitalization, Disabling)
  Sender: FDA-Public Use
  Company Number: 2005GB01585

PATIENT
  Age: 13 Year
  Sex: Female
  Weight: 30.6 kg

DRUGS (1)
  1. LOSEC MUPS [Suspect]
     Indication: GASTROOESOPHAGEAL REFLUX DISEASE
     Route: 048
     Dates: start: 20010322

REACTIONS (1)
  - MEDICAL DEVICE COMPLICATION [None]
